FAERS Safety Report 16664243 (Version 1)
Quarter: 2019Q3

REPORT INFORMATION
  Report Type: Spontaneous
  Country: US (occurrence: US)
  Receive Date: 20190802
  Receipt Date: 20190802
  Transmission Date: 20191004
  Serious: No
  Sender: FDA-Public Use
  Company Number: US-TARO-2019TAR00457

PATIENT
  Sex: Female
  Weight: 43.08 kg

DRUGS (2)
  1. ADAPALENE AND BENZOYL PEROXIDE [Suspect]
     Active Substance: ADAPALENE\BENZOYL PEROXIDE
     Indication: ACNE
     Dosage: UNK 1 TO 2 TIMES DAILY
     Route: 061
     Dates: start: 201905, end: 201905
  2. SERTRALINE [Concomitant]
     Active Substance: SERTRALINE HYDROCHLORIDE
     Dosage: UNK, 1X/DAY

REACTIONS (4)
  - Application site urticaria [Recovered/Resolved]
  - Feeling abnormal [Recovering/Resolving]
  - Rash macular [Recovering/Resolving]
  - Rash papular [Recovering/Resolving]

NARRATIVE: CASE EVENT DATE: 2019
